FAERS Safety Report 7668438-7 (Version None)
Quarter: 2011Q3

REPORT INFORMATION
  Report Type: 
  Country: None (occurrence: None)
  Receive Date: 20110808
  Receipt Date: 20110729
  Transmission Date: 20111222
  Serious: Yes (Hospitalization)
  Sender: FDA-Public Use
  Company Number: JP-BAYER-201010124BYL

PATIENT
  Age: 65 Year
  Sex: Male
  Weight: 58 kg

DRUGS (12)
  1. KERATINAMIN [Concomitant]
     Route: 061
     Dates: start: 20090828, end: 20090928
  2. NORVASC [Concomitant]
     Route: 048
     Dates: start: 20090828, end: 20090928
  3. PURSENNID [Concomitant]
     Route: 048
     Dates: start: 20090828, end: 20090928
  4. OXYCONTIN [Concomitant]
     Route: 048
     Dates: start: 20090828, end: 20090928
  5. ACRINOL [Concomitant]
     Route: 061
     Dates: start: 20090828, end: 20090928
  6. NEXAVAR [Suspect]
     Indication: RENAL CELL CARCINOMA
     Route: 048
     Dates: start: 20090828, end: 20090904
  7. NEXAVAR [Suspect]
     Dosage: DAILY DOSE 400 MG
     Route: 048
     Dates: start: 20090912, end: 20090916
  8. LANSOPRAZOLE [Concomitant]
     Route: 048
     Dates: start: 20090828, end: 20090928
  9. LOXONIN [Concomitant]
     Route: 048
     Dates: start: 20090828, end: 20090928
  10. MAGMITT [Concomitant]
     Route: 048
     Dates: start: 20090828, end: 20090928
  11. PROCHLORPERAZINE [Concomitant]
     Route: 048
     Dates: start: 20090828, end: 20090928
  12. OXINORM [Concomitant]
     Route: 048
     Dates: start: 20090828, end: 20090928

REACTIONS (2)
  - HEPATIC FUNCTION ABNORMAL [None]
  - LIVER DISORDER [None]
